FAERS Safety Report 6074255-4 (Version None)
Quarter: 2009Q1

REPORT INFORMATION
  Report Type: 
  Country: None (occurrence: None)
  Receive Date: 20090211
  Receipt Date: 20090203
  Transmission Date: 20090719
  Serious: Yes (Hospitalization)
  Sender: FDA-Public Use
  Company Number: PHHY2009BE03815

PATIENT
  Age: 15 Year
  Sex: Male

DRUGS (3)
  1. RITALIN LA [Suspect]
     Indication: ATTENTION DEFICIT/HYPERACTIVITY DISORDER
     Dosage: 30 MG
     Dates: start: 20080901
  2. RITALIN [Suspect]
     Indication: ATTENTION DEFICIT/HYPERACTIVITY DISORDER
     Dosage: 10 MG IN THE EVENING WHEN NEEDED
  3. RITALIN [Suspect]
     Dosage: 10 MG
     Dates: start: 20080901

REACTIONS (2)
  - MUSCLE TIGHTNESS [None]
  - SYNCOPE [None]
